FAERS Safety Report 9034854 (Version 2)
Quarter: 2013Q2

REPORT INFORMATION
  Report Type: Spontaneous
  Country: JP (occurrence: JP)
  Receive Date: 20130128
  Receipt Date: 20130429
  Transmission Date: 20140414
  Serious: Yes (Hospitalization)
  Sender: FDA-Public Use
  Company Number: JP-VERTEX PHARMACEUTICALS INC.-2013-001212

PATIENT
  Age: 68 Year
  Sex: Male

DRUGS (12)
  1. TELAVIC [Suspect]
     Indication: CHRONIC HEPATITIS C
     Dosage: 1500 MG, QD
     Route: 048
     Dates: start: 20120801, end: 20121023
  2. PEGINTERFERON ALFA-2B [Suspect]
     Indication: CHRONIC HEPATITIS C
     Dosage: 120 ?G/WEEK
     Route: 058
     Dates: start: 20120801, end: 20120829
  3. PEGINTERFERON ALFA-2B [Suspect]
     Dosage: 1 ?G/KG/WEEK
     Route: 058
     Dates: start: 20120805, end: 20121121
  4. RIBAVIRIN [Concomitant]
     Dosage: 800 MG, QD
     Route: 048
     Dates: start: 20120801, end: 20120904
  5. RIBAVIRIN [Concomitant]
     Dosage: 600 MG, QD
     Route: 048
     Dates: start: 20120905, end: 20121127
  6. URSO [Concomitant]
     Dosage: 600 MG, QD
     Route: 048
     Dates: end: 20120829
  7. TSUMURA CHOREITO [Concomitant]
     Dosage: 7.5 G, QD
     Route: 048
  8. MAGMITT [Concomitant]
     Dosage: 2 G, QD
     Route: 048
  9. YODEL [Concomitant]
     Dosage: 80 MG, PRN
     Route: 048
  10. AMLODIN [Concomitant]
     Dosage: 5 MG, QD
     Route: 048
  11. RHYTHMY [Concomitant]
     Dosage: 2 MG, PRN
     Route: 048
  12. RHYTHMY [Concomitant]
     Dosage: 2 MG, QD
     Route: 048

REACTIONS (4)
  - Hepatic cancer [Not Recovered/Not Resolved]
  - Pyrexia [Recovered/Resolved]
  - Hyperuricaemia [Recovered/Resolved]
  - Platelet count decreased [Recovered/Resolved]
